FAERS Safety Report 7395803-8 (Version None)
Quarter: 2011Q2

REPORT INFORMATION
  Report Type: 
  Country: None (occurrence: None)
  Receive Date: 20110405
  Receipt Date: 20110325
  Transmission Date: 20111010
  Serious: Yes (Other)
  Sender: FDA-Public Use
  Company Number: US-BAYER-2011-026605

PATIENT
  Sex: Female

DRUGS (5)
  1. AVELOX [Suspect]
     Indication: NASOPHARYNGITIS
     Dosage: 400 MG, QD
     Route: 048
     Dates: start: 20110321, end: 20110322
  2. METOPROLOL [Concomitant]
  3. TOPAMAX [Concomitant]
  4. LEXAPRO [Concomitant]
  5. UNCODEABLE ^UNCLASSIFIABLE^ [Concomitant]

REACTIONS (1)
  - TREMOR [None]
